FAERS Safety Report 4934817-1 (Version None)
Quarter: 2006Q1

REPORT INFORMATION
  Report Type: 
  Country: None (occurrence: None)
  Receive Date: 20060307
  Receipt Date: 20050315
  Transmission Date: 20060701
  Serious: Yes (Hospitalization, Other)
  Sender: FDA-Public Use
  Company Number: US-MERCK-0503USA03170

PATIENT
  Age: 71 Year
  Sex: Male
  Weight: 93 kg

DRUGS (8)
  1. VIOXX [Suspect]
     Indication: ARTHRITIS
     Route: 048
     Dates: start: 19990101, end: 20040901
  2. COUMADIN [Concomitant]
     Route: 065
  3. ZINC (UNSPECIFIED) [Concomitant]
     Route: 065
  4. MAGNESIUM (UNSPECIFIED) [Concomitant]
     Route: 065
  5. ZOLOFT [Concomitant]
     Route: 065
  6. ARICEPT [Concomitant]
     Route: 065
  7. ZOCOR [Concomitant]
     Route: 065
  8. ASPIRIN [Concomitant]
     Route: 065

REACTIONS (3)
  - BLEEDING TIME ABNORMAL [None]
  - CEREBROVASCULAR ACCIDENT [None]
  - FALL [None]
